FAERS Safety Report 7553899-4 (Version None)
Quarter: 2011Q2

REPORT INFORMATION
  Report Type: 
  Country: None (occurrence: None)
  Receive Date: 20110617
  Receipt Date: 20110607
  Transmission Date: 20111010
  Serious: Yes (Hospitalization)
  Sender: FDA-Public Use
  Company Number: US-AMGEN-USASP2011024949

PATIENT
  Age: 54 Year
  Sex: Female
  Weight: 88.435 kg

DRUGS (1)
  1. ENBREL [Suspect]
     Indication: ANKYLOSING SPONDYLITIS
     Dosage: 50 MG, QWK
     Dates: start: 20000512

REACTIONS (5)
  - DIVERTICULITIS [None]
  - OSTEOPENIA [None]
  - FIBROMYALGIA [None]
  - ARTHROPATHY [None]
  - BLOOD DISORDER [None]
